FAERS Safety Report 8850812 (Version 1)
Quarter: 2012Q4

REPORT INFORMATION
  Report Type: 
  Country: US (occurrence: US)
  Receive Date: 20121019
  Receipt Date: 20121019
  Transmission Date: 20130627
  Serious: Yes (Other)
  Sender: FDA-Public Use
  Company Number: US-AMGEN-USASP2012065886

PATIENT
  Age: 57 Year
  Sex: Male

DRUGS (12)
  1. PROCRIT [Suspect]
     Indication: RENAL FAILURE
     Dosage: 10000 unit, UNK
  2. CALCIUM [Concomitant]
     Dosage: UNK
  3. GABAPENTIN [Concomitant]
     Dosage: UNK
  4. INSULIN [Concomitant]
     Indication: DIABETES MELLITUS
     Dosage: UNK
  5. NIFEDIPINE [Concomitant]
     Indication: HYPERTENSION
     Dosage: UNK
  6. NITROGLYCERIN [Concomitant]
     Indication: ANGINA PECTORIS
     Dosage: UNK
  7. OXYMORPHONE [Concomitant]
     Dosage: UNK
  8. PANTOPRAZOLE [Concomitant]
     Indication: GASTROOESOPHAGEAL REFLUX DISEASE
     Dosage: UNK
  9. PREDNISONE [Concomitant]
     Dosage: UNK
  10. SIMVASTATIN [Concomitant]
     Dosage: UNK
  11. TAMSULOSIN [Concomitant]
     Dosage: UNK
  12. CEFTAZIDIME [Concomitant]
     Dosage: UNK

REACTIONS (1)
  - Aplasia pure red cell [Unknown]
